FAERS Safety Report 12480322 (Version 1)
Quarter: 2016Q2

REPORT INFORMATION
  Report Type: Report from Study
  Country: DK (occurrence: IT)
  Receive Date: 20160620
  Receipt Date: 20160620
  Transmission Date: 20160815
  Serious: Yes (Other)
  Sender: FDA-Public Use
  Company Number: IT-FRI-1000085373

PATIENT
  Age: 31 Year
  Sex: Female

DRUGS (2)
  1. ESCITALOPRAM [Suspect]
     Active Substance: ESCITALOPRAM OXALATE
     Indication: DRUG ABUSE
     Dosage: OVERDOSE: 27 DOSAGE FORMS.
     Route: 048
     Dates: start: 20160322, end: 20160322
  2. DEPAKIN ^200MG COMPRESSE GASTRORESISTENTI^ [Suspect]
     Active Substance: VALPROATE SODIUM
     Indication: DRUG ABUSE
     Dosage: 20 DOSAGE FORMS.
     Route: 048
     Dates: start: 20160322, end: 20160322

REACTIONS (2)
  - Toxicity to various agents [Recovering/Resolving]
  - Sopor [Recovering/Resolving]

NARRATIVE: CASE EVENT DATE: 20160322
